FAERS Safety Report 9086066 (Version 1)
Quarter: 2013Q1

REPORT INFORMATION
  Report Type: Report from Study
  Country: US (occurrence: US)
  Receive Date: 20130130
  Receipt Date: 20130130
  Transmission Date: 20140127
  Serious: No
  Sender: FDA-Public Use
  Company Number: US-ABBOTT-12P-163-0981982-00

PATIENT
  Age: 38 Year
  Sex: Female
  Weight: 85.35 kg

DRUGS (1)
  1. HUMIRA [Suspect]
     Route: 058
     Dates: start: 20111220

REACTIONS (2)
  - Skin exfoliation [Not Recovered/Not Resolved]
  - Erythema [Not Recovered/Not Resolved]
